FAERS Safety Report 8357882-0 (Version None)
Quarter: 2012Q2

REPORT INFORMATION
  Report Type: 
  Country: None (occurrence: None)
  Receive Date: 20120511
  Receipt Date: 20120430
  Transmission Date: 20120825
  Serious: Yes (Disabling, Other)
  Sender: FDA-Public Use
  Company Number: CIP11000264

PATIENT
  Age: 61 Year
  Sex: Female
  Weight: 68 kg

DRUGS (10)
  1. ACTONEL [Suspect]
     Dosage: 35 MG ONCE A WEEK, ORAL
     Route: 048
     Dates: start: 20030501, end: 20080101
  2. HYDROCHLOROTHIAZIDE [Concomitant]
  3. FOLIC ACID [Concomitant]
  4. METHOTREXATE [Concomitant]
  5. CALCIUM WITH VITAMIN D /00944201/ (CALCIUM CARBONATE, COLECALCIFEROL) [Concomitant]
  6. ASPIRIN [Concomitant]
  7. LIPITOR [Concomitant]
  8. ZOLOFT [Concomitant]
  9. MICARDIS HCT [Concomitant]
  10. ACTONEL [Suspect]
     Indication: OSTEOPENIA
     Dosage: 150 MG ONCE A MONTH, ORAL
     Route: 048
     Dates: start: 20080101, end: 20110101

REACTIONS (9)
  - STRESS FRACTURE [None]
  - FEMUR FRACTURE [None]
  - MUSCULAR WEAKNESS [None]
  - PAIN IN EXTREMITY [None]
  - MEDIAL TIBIAL STRESS SYNDROME [None]
  - FOOT FRACTURE [None]
  - OSTEOSCLEROSIS [None]
  - TIBIA FRACTURE [None]
  - BONE PAIN [None]
